FAERS Safety Report 7732793-X (Version None)
Quarter: 2011Q3

REPORT INFORMATION
  Report Type: 
  Country: None (occurrence: None)
  Receive Date: 20110901
  Receipt Date: 20110901
  Transmission Date: 20111222
  Serious: Yes (Other)
  Sender: FDA-Public Use
  Company Number: None

PATIENT
  Sex: Male
  Weight: 97.977 kg

DRUGS (1)
  1. REMICADE [Suspect]
     Indication: PSORIATIC ARTHROPATHY
     Dates: start: 20101020, end: 20110707

REACTIONS (4)
  - LOSS OF CONSCIOUSNESS [None]
  - RASH [None]
  - PRURITUS [None]
  - DRUG HYPERSENSITIVITY [None]
